FAERS Safety Report 7782867-2 (Version None)
Quarter: 2011Q3

REPORT INFORMATION
  Report Type: 
  Country: None (occurrence: None)
  Receive Date: 20110928
  Receipt Date: 20110913
  Transmission Date: 20111222
  Serious: Yes (Other)
  Sender: FDA-Public Use
  Company Number: PHFR2011GB02766

PATIENT
  Sex: Female

DRUGS (1)
  1. CLOZAPINE [Suspect]
     Route: 048
     Dates: start: 20110121

REACTIONS (4)
  - INTENTIONAL SELF-INJURY [None]
  - INFECTION [None]
  - HAEMORRHAGE [None]
  - HAEMOGLOBIN DECREASED [None]
